FAERS Safety Report 6707037-8 (Version None)
Quarter: 2010Q2

REPORT INFORMATION
  Report Type: 
  Country: None (occurrence: None)
  Receive Date: 20100429
  Receipt Date: 20100420
  Transmission Date: 20101027
  Serious: Yes (Death, Hospitalization, Other)
  Sender: FDA-Public Use
  Company Number: A-US2010-35286

PATIENT
  Age: 67 Year
  Sex: Female

DRUGS (1)
  1. TRACLEER [Suspect]
     Indication: PULMONARY HYPERTENSION
     Dosage: 62.5 MG, BID, ORAL
     Route: 048
     Dates: start: 20100323, end: 20100325

REACTIONS (7)
  - ARTHRALGIA [None]
  - DYSPNOEA [None]
  - EPISTAXIS [None]
  - INSOMNIA [None]
  - NASAL INFLAMMATION [None]
  - OEDEMA [None]
  - OFF LABEL USE [None]
